FAERS Safety Report 9508669 (Version 1)
Quarter: 2013Q3

REPORT INFORMATION
  Report Type: Report from Study
  Country: US (occurrence: US)
  Receive Date: 20130909
  Receipt Date: 20130909
  Transmission Date: 20140515
  Serious: Yes (Other)
  Sender: FDA-Public Use
  Company Number: US-US-EMD SERONO, INC.-7235322

PATIENT
  Sex: Male
  Weight: 56 kg

DRUGS (2)
  1. SEROSTIM [(SOMATROPIN (RDNA ORIGIN) FOR INJECTION)] [Suspect]
     Indication: CACHEXIA
     Route: 058
     Dates: start: 20101009
  2. KALETRA                            /01399701/ [Concomitant]
     Indication: HIV INFECTION

REACTIONS (7)
  - Encephalopathy [Unknown]
  - Eye disorder [Unknown]
  - Trigeminal neuralgia [Recovering/Resolving]
  - Dyspnoea [Unknown]
  - Wheezing [Unknown]
  - Malaise [Recovering/Resolving]
  - Fatigue [Recovering/Resolving]
